FAERS Safety Report 18994851 (Version 1)
Quarter: 2021Q1

REPORT INFORMATION
  Report Type: Spontaneous
  Country: LT (occurrence: LT)
  Receive Date: 20210310
  Receipt Date: 20210310
  Transmission Date: 20210420
  Serious: Yes (Other)
  Sender: FDA-Public Use
  Company Number: LT-UCBSA-2021010437

PATIENT
  Age: 9 Year
  Sex: Female

DRUGS (10)
  1. LEVETIRACETAM. [Suspect]
     Active Substance: LEVETIRACETAM
     Indication: EPILEPSY
     Dosage: UNKNOWN DOSE
  2. NITRAZEPAM [Suspect]
     Active Substance: NITRAZEPAM
     Indication: EPILEPSY
     Dosage: UNKNOWN DOSE
  3. VIGABATRIN. [Suspect]
     Active Substance: VIGABATRIN
     Indication: EPILEPSY
     Dosage: UNKNOWN DOSE
  4. DIACARB [Suspect]
     Active Substance: ACETAZOLAMIDE
     Indication: EPILEPSY
     Dosage: UNKNOWN DOSE
  5. VALPROIC ACID. [Suspect]
     Active Substance: VALPROIC ACID
     Indication: EPILEPSY
     Dosage: UNKNOWN DOSE
  6. ETHOSUXIMIDE. [Suspect]
     Active Substance: ETHOSUXIMIDE
     Indication: EPILEPSY
     Dosage: UNKNOWN DOSE
  7. CLOBAZAM. [Suspect]
     Active Substance: CLOBAZAM
     Indication: EPILEPSY
     Dosage: UNKNOWN DOSE
  8. CLONAZEPAM. [Suspect]
     Active Substance: CLONAZEPAM
     Indication: EPILEPSY
     Dosage: UNKNOWN DOSE
  9. TOPIRAMATE. [Suspect]
     Active Substance: TOPIRAMATE
     Indication: EPILEPSY
     Dosage: UNKNOWN DOSE
  10. METHYLPREDNISOLONE. [Suspect]
     Active Substance: METHYLPREDNISOLONE
     Indication: EPILEPSY
     Dosage: UNKNOWN DOSE
     Route: 042

REACTIONS (3)
  - Multiple-drug resistance [Unknown]
  - Drug ineffective [Unknown]
  - Therapy partial responder [Unknown]
